FAERS Safety Report 4578010-3 (Version None)
Quarter: 2005Q1

REPORT INFORMATION
  Report Type: 
  Country: None (occurrence: None)
  Receive Date: 20050203
  Receipt Date: 20050203
  Transmission Date: 20050727
  Serious: Yes (Hospitalization)
  Sender: FDA-Public Use
  Company Number: None

PATIENT
  Age: 71 Year
  Sex: Male
  Weight: 69.4003 kg

DRUGS (3)
  1. CISPLATIN [Suspect]
  2. FLUOROURACIL [Suspect]
  3. DOCETAXEL [Suspect]

REACTIONS (6)
  - OESOPHAGEAL ANASTOMOSIS [None]
  - OESOPHAGEAL STENOSIS [None]
  - PLEURAL EFFUSION [None]
  - PNEUMONIA ASPIRATION [None]
  - POST PROCEDURAL COMPLICATION [None]
  - TACHYCARDIA [None]
